FAERS Safety Report 10374669 (Version 1)
Quarter: 2014Q3

REPORT INFORMATION
  Report Type: Spontaneous
  Country: US (occurrence: None)
  Receive Date: 20140808
  Receipt Date: 20140808
  Transmission Date: 20150326
  Serious: Yes (Hospitalization)
  Sender: FDA-Public Use
  Company Number: None

PATIENT
  Age: 56 Year
  Sex: Female
  Weight: 54.43 kg

DRUGS (3)
  1. PREDNISONE. [Concomitant]
     Active Substance: PREDNISONE
  2. EVEROLIMUS [Suspect]
     Active Substance: EVEROLIMUS
     Indication: IMMUNOSUPPRESSION
     Dosage: 2MG IN AM AND 1.5MG IN PM
     Route: 048
     Dates: start: 20140725
  3. TACROLIMUS. [Concomitant]
     Active Substance: TACROLIMUS

REACTIONS (5)
  - Pyrexia [None]
  - Complications of transplant surgery [None]
  - Pyuria [None]
  - Dysuria [None]
  - Complications of transplanted kidney [None]

NARRATIVE: CASE EVENT DATE: 20140725
